FAERS Safety Report 23499203 (Version 1)
Quarter: 2024Q1

REPORT INFORMATION
  Report Type: Report from Study
  Country: CA (occurrence: CA)
  Receive Date: 20240208
  Receipt Date: 20240208
  Transmission Date: 20240410
  Serious: Yes (Death, Hospitalization)
  Sender: FDA-Public Use
  Company Number: CA-AMGEN-CANSL2024000884

PATIENT
  Age: 63 Year
  Sex: Male

DRUGS (1)
  1. MVASI [Suspect]
     Active Substance: BEVACIZUMAB-AWWB
     Indication: Glioblastoma multiforme
     Dosage: 485 MILLIGRAM, Q3WK
     Route: 065
     Dates: start: 20231208, end: 20240104

REACTIONS (2)
  - Pulmonary embolism [Fatal]
  - Off label use [Unknown]

NARRATIVE: CASE EVENT DATE: 20231214
